FAERS Safety Report 9812728 (Version 1)
Quarter: 2014Q1

REPORT INFORMATION
  Report Type: Spontaneous
  Country: IE (occurrence: US)
  Receive Date: 20140113
  Receipt Date: 20140113
  Transmission Date: 20141002
  Serious: No
  Sender: FDA-Public Use
  Company Number: 2013SP007330

PATIENT
  Age: 70 Year
  Sex: Male

DRUGS (20)
  1. VANCOMYCIN [Suspect]
     Indication: PNEUMONIA
     Dates: start: 201309
  2. CEPHAZOLIN SODIUM [Suspect]
     Indication: PNEUMONIA
     Dates: start: 201309
  3. REVLIMID [Suspect]
     Indication: PLASMA CELL MYELOMA
     Route: 048
     Dates: start: 201308
  4. LABETALOL HYDROCHLORIDE [Concomitant]
  5. SODIUM BICARBONATE [Concomitant]
  6. ALLOPURINOL [Concomitant]
  7. ALFUZOSIN HYDROCHLORIDE [Concomitant]
  8. OMEPRAZOLE [Concomitant]
  9. BACTRIM [Concomitant]
  10. HYDRALAZINE [Concomitant]
  11. GLUCOSAMINE + CHONDROITIN [Concomitant]
  12. VELCADE [Concomitant]
  13. CENTRUM /02217401/ [Concomitant]
  14. AMBIEN [Concomitant]
  15. AMLODIPINE [Concomitant]
  16. FLUTICASONE PROPIONATE [Concomitant]
  17. ONDANSETRON HYDROCHLORIDE [Concomitant]
  18. FINASTERIDE [Concomitant]
  19. ACICLOVIR [Concomitant]
  20. ASPIRIN [Concomitant]

REACTIONS (1)
  - Drug hypersensitivity [Recovered/Resolved]
